FAERS Safety Report 5115536-8 (Version None)
Quarter: 2006Q3

REPORT INFORMATION
  Report Type: 
  Country: None (occurrence: None)
  Receive Date: 20060925
  Receipt Date: 20060919
  Transmission Date: 20061208
  Serious: Yes (Hospitalization)
  Sender: FDA-Public Use
  Company Number: 2006BI012005

PATIENT
  Age: 28 Year
  Sex: Female

DRUGS (13)
  1. AVONEX [Suspect]
     Indication: MULTIPLE SCLEROSIS
     Dates: start: 20060120, end: 20060520
  2. AVONEX [Suspect]
     Indication: MULTIPLE SCLEROSIS
     Dates: start: 20060701, end: 20060701
  3. TOPROL-XL [Concomitant]
  4. ALPRAZOLAM [Concomitant]
  5. REMERON [Concomitant]
  6. LOESTRIN [Concomitant]
  7. RHINOCORT [Concomitant]
  8. VISTARIL [Concomitant]
  9. NEXIUM [Concomitant]
  10. PROTONIX [Concomitant]
  11. BENTYL [Concomitant]
  12. COLACE [Concomitant]
  13. PROVIGIL [Concomitant]

REACTIONS (1)
  - CYSTITIS [None]
